FAERS Safety Report 7507939-9 (Version None)
Quarter: 2011Q2

REPORT INFORMATION
  Report Type: 
  Country: None (occurrence: None)
  Receive Date: 20110527
  Receipt Date: 20110512
  Transmission Date: 20111010
  Serious: Yes (Hospitalization)
  Sender: FDA-Public Use
  Company Number: CA-JNJFOC-20110506688

PATIENT
  Sex: Male
  Weight: 74.1 kg

DRUGS (1)
  1. REMICADE [Suspect]
     Indication: ANKYLOSING SPONDYLITIS
     Route: 042
     Dates: start: 20100125, end: 20110217

REACTIONS (2)
  - HEART VALVE REPLACEMENT [None]
  - CORONARY ARTERY OCCLUSION [None]
